FAERS Safety Report 18146740 (Version 8)
Quarter: 2022Q3

REPORT INFORMATION
  Report Type: Spontaneous
  Country: US (occurrence: US)
  Receive Date: 20200813
  Receipt Date: 20220914
  Transmission Date: 20221027
  Serious: Yes (Other)
  Sender: FDA-Public Use
  Company Number: US-PFIZER INC-2020310492

PATIENT
  Age: 58 Year
  Sex: Female

DRUGS (1)
  1. LORBRENA [Suspect]
     Active Substance: LORLATINIB
     Indication: Lung neoplasm malignant
     Dosage: 100 MG, DAILY
     Route: 048
     Dates: start: 20190829

REACTIONS (9)
  - Anxiety [Not Recovered/Not Resolved]
  - Impaired driving ability [Unknown]
  - Cognitive disorder [Unknown]
  - Impaired quality of life [Unknown]
  - Culture positive [Unknown]
  - Neoplasm progression [Unknown]
  - Blood cholesterol increased [Not Recovered/Not Resolved]
  - Malaise [Unknown]
  - Off label use [Unknown]
